FAERS Safety Report 10614678 (Version 1)
Quarter: 2014Q4

REPORT INFORMATION
  Report Type: Spontaneous
  Country: PL (occurrence: PL)
  Receive Date: 20141130
  Receipt Date: 20141130
  Transmission Date: 20150529
  Serious: Yes (Other)
  Sender: FDA-Public Use
  Company Number: PL-009507513-1411POL013146

PATIENT

DRUGS (1)
  1. TRUSOPT [Suspect]
     Active Substance: DORZOLAMIDE HYDROCHLORIDE
     Indication: GLAUCOMA
     Dosage: UNK
     Route: 047
     Dates: start: 1999

REACTIONS (4)
  - Eye disorder [Unknown]
  - Myocardial infarction [Unknown]
  - Eye disorder [Recovered/Resolved]
  - Lacrimal duct procedure [Unknown]

NARRATIVE: CASE EVENT DATE: 2009
